FAERS Safety Report 10607595 (Version 1)
Quarter: 2014Q4

REPORT INFORMATION
  Report Type: Spontaneous
  Country: FR (occurrence: FR)
  Receive Date: 20141125
  Receipt Date: 20141125
  Transmission Date: 20150529
  Serious: Yes (Hospitalization)
  Sender: FDA-Public Use
  Company Number: FR-BRISTOL-MYERS SQUIBB COMPANY-21604327

PATIENT
  Age: 62 Year
  Sex: Female

DRUGS (2)
  1. PLAQUENIL [Suspect]
     Active Substance: HYDROXYCHLOROQUINE SULFATE
     Indication: LICHEN PLANUS
     Route: 048
     Dates: start: 20130705, end: 20130708
  2. KENACORT [Suspect]
     Active Substance: TRIAMCINOLONE
     Indication: LICHEN PLANUS
     Dosage: 1DF:40 MG/1 ML- ONE INTAKE
     Route: 026
     Dates: start: 20130705

REACTIONS (3)
  - Dermatomyositis [Unknown]
  - Burning sensation [Recovered/Resolved]
  - Rash erythematous [Recovering/Resolving]

NARRATIVE: CASE EVENT DATE: 20130705
